FAERS Safety Report 7248814-7 (Version None)
Quarter: 2011Q1

REPORT INFORMATION
  Report Type: 
  Country: None (occurrence: None)
  Receive Date: 20110128
  Receipt Date: 20110117
  Transmission Date: 20110831
  Serious: Yes (Death, Other)
  Sender: FDA-Public Use
  Company Number: US-CELGENEUS-163-21880-11011756

PATIENT
  Age: 47 Year

DRUGS (4)
  1. THALOMID [Suspect]
     Route: 065
  2. MELPHALAN [Suspect]
  3. CC-5013 [Suspect]
     Indication: MULTIPLE MYELOMA
     Route: 048
  4. DEXAMETHASONE [Suspect]
     Route: 065

REACTIONS (2)
  - ACUTE LYMPHOCYTIC LEUKAEMIA [None]
  - COMPLICATIONS OF BONE MARROW TRANSPLANT [None]
